FAERS Safety Report 10655538 (Version 7)
Quarter: 2015Q4

REPORT INFORMATION
  Report Type: Spontaneous
  Country: BR (occurrence: BR)
  Receive Date: 20141216
  Receipt Date: 20151020
  Transmission Date: 20160304
  Serious: Yes (Hospitalization, Other)
  Sender: FDA-Public Use
  Company Number: BR-PFIZER INC-2013184572

PATIENT
  Age: 82 Year
  Sex: Female
  Weight: 54 kg

DRUGS (17)
  1. VIAGRA [Suspect]
     Active Substance: SILDENAFIL CITRATE
     Indication: LUNG DISORDER
     Dosage: 50 MG, 1X/DAY
     Route: 048
  2. DIOVAN AMLO [Concomitant]
     Active Substance: AMLODIPINE\VALSARTAN
     Indication: HYPERTENSION
     Dosage: 320MG/5MG AT 1 TABLET ORALLY EVERY 8 HOURS
     Dates: start: 20130606
  3. OCUVITE [Concomitant]
     Active Substance: VITAMINS
     Dosage: UNK
     Dates: start: 2009
  4. VIAGRA [Suspect]
     Active Substance: SILDENAFIL CITRATE
     Indication: PULMONARY EMBOLISM
     Dosage: 25 MG (HALF TABLET OF 50 MG), 1X/DAY
     Route: 048
     Dates: start: 201306
  5. LOTENSIN [Concomitant]
     Active Substance: BENAZEPRIL HYDROCHLORIDE
     Dosage: 1 TABLET DAILY
  6. DEPURA [Concomitant]
     Active Substance: CHOLECALCIFEROL
     Indication: VITAMIN D DECREASED
     Dosage: 10 DROPS DAILY (USES EVERY 3 MONTHS)
  7. SIMVASTATIN. [Concomitant]
     Active Substance: SIMVASTATIN
     Indication: BLOOD CHOLESTEROL INCREASED
     Dosage: 20 MG AT 1 TABLET DAILY
  8. XARELTO [Concomitant]
     Active Substance: RIVAROXABAN
     Indication: ANTICOAGULANT THERAPY
     Dosage: 15 MG AT ONE TABLET DAILY
     Route: 048
     Dates: start: 20130424
  9. ATENSINA [Concomitant]
     Active Substance: CLONIDINE
     Dosage: 100 MG, 4X/DAY
     Route: 048
  10. VIAGRA [Suspect]
     Active Substance: SILDENAFIL CITRATE
     Dosage: 25 MG (HALF TABLET OF 50MG), TWICE DAILY
     Route: 048
     Dates: start: 201307
  11. CALCIO + D [Concomitant]
     Active Substance: CALCIUM CARBONATE\CHOLECALCIFEROL
     Indication: OSTEOPOROSIS
     Dosage: 2 TABLETS DAILY
     Dates: start: 1999
  12. SIMVASTATIN. [Concomitant]
     Active Substance: SIMVASTATIN
     Dosage: 10 MG, UNK
     Dates: start: 2010
  13. CONCOR [Concomitant]
     Active Substance: BISOPROLOL FUMARATE
     Dosage: 2.5MG AT 1 TABLET ORALLY, EVERY 8 HOURS
     Route: 048
  14. VIAGRA [Suspect]
     Active Substance: SILDENAFIL CITRATE
     Indication: PULMONARY HYPERTENSION
     Dosage: 25 MG (HALF TABLET OF 50 MG) TWICE DAILY (IN THE MORNING AND AT NIGHT)
     Route: 048
     Dates: start: 20130406
  15. PURAN [Concomitant]
     Active Substance: LEVOTHYROXINE SODIUM
     Indication: PULMONARY HYPERTENSION
     Dosage: 1 TABLET DAILY (25MG)
     Route: 048
  16. NEXIUM [Concomitant]
     Active Substance: ESOMEPRAZOLE MAGNESIUM
     Dosage: 20 MG, TAKEN SOMETIMES
  17. RECONTER [Concomitant]
     Active Substance: ESCITALOPRAM OXALATE
     Dosage: 10 MG, 1X/DAY AT BREAKFAST
     Route: 048

REACTIONS (7)
  - Blood pressure decreased [Unknown]
  - Intentional product use issue [Unknown]
  - Emphysema [Unknown]
  - Malaise [Not Recovered/Not Resolved]
  - Insomnia [Not Recovered/Not Resolved]
  - Off label use [Not Recovered/Not Resolved]
  - Neovascular age-related macular degeneration [Not Recovered/Not Resolved]

NARRATIVE: CASE EVENT DATE: 2013
